FAERS Safety Report 9044454 (Version 1)
Quarter: 2013Q1

REPORT INFORMATION
  Report Type: Spontaneous
  Country: IT (occurrence: IT)
  Receive Date: 20130131
  Receipt Date: 20130131
  Transmission Date: 20140127
  Serious: Yes (Other)
  Sender: FDA-Public Use
  Company Number: IT-RANBAXY-2007US-06727

PATIENT
  Age: 39 Year
  Sex: Male

DRUGS (2)
  1. TOPIRAMATE [Suspect]
     Indication: COMPLEX PARTIAL SEIZURES
     Dosage: UNK
     Route: 065
  2. OXCARBAZEPINE [Concomitant]
     Indication: COMPLEX PARTIAL SEIZURES
     Dosage: 600 MG/DAY
     Route: 065

REACTIONS (2)
  - Aphasia [Recovering/Resolving]
  - Cerebral hypoperfusion [Recovered/Resolved]
